FAERS Safety Report 6830557-2 (Version None)
Quarter: 2010Q3

REPORT INFORMATION
  Report Type: 
  Country: None (occurrence: None)
  Receive Date: 20100709
  Receipt Date: 20100709
  Transmission Date: 20110219
  Serious: Yes (Other)
  Sender: FDA-Public Use
  Company Number: None

PATIENT
  Sex: Female
  Weight: 61.2356 kg

DRUGS (1)
  1. ACTONEL [Suspect]
     Indication: BONE DENSITY DECREASED
     Dosage: ONCE A MO. 150 ONCE A MO. ORAL
     Route: 048
     Dates: end: 20100530

REACTIONS (7)
  - ARTHRALGIA [None]
  - BACK PAIN [None]
  - BALANCE DISORDER [None]
  - EYE PAIN [None]
  - FALL [None]
  - MUSCLE ATROPHY [None]
  - MYALGIA [None]
